FAERS Safety Report 9275671 (Version 1)
Quarter: 2013Q2

REPORT INFORMATION
  Report Type: Spontaneous
  Country: US (occurrence: None)
  Receive Date: 20130502
  Receipt Date: 20130502
  Transmission Date: 20140414
  Serious: Yes (Other)
  Sender: FDA-Public Use
  Company Number: None

PATIENT
  Age: 31 Year
  Sex: Female
  Weight: 54.43 kg

DRUGS (1)
  1. ZOLOFT [Suspect]
     Indication: BIPOLAR DISORDER
     Dosage: 1/2 QAM

REACTIONS (4)
  - Dyspnoea [None]
  - Fear [None]
  - Panic attack [None]
  - Oropharyngeal discomfort [None]
